FAERS Safety Report 8203669-9 (Version None)
Quarter: 2012Q1

REPORT INFORMATION
  Report Type: 
  Country: None (occurrence: None)
  Receive Date: 20120308
  Receipt Date: 20120227
  Transmission Date: 20120608
  Serious: Yes (Other)
  Sender: FDA-Public Use
  Company Number: 2012MA002561

PATIENT
  Age: 72 Year
  Sex: Female
  Weight: 75.2971 kg

DRUGS (12)
  1. DILAUDID [Concomitant]
  2. HYDROMORPHONE HCL [Concomitant]
  3. CYMBALTA [Concomitant]
  4. LISINOPRIL [Concomitant]
  5. PREVACID [Concomitant]
  6. SEREVENT [Concomitant]
  7. METOCLOPRAMIDE HYDROCHLORIDE [Suspect]
     Indication: GASTROOESOPHAGEAL REFLUX DISEASE
     Dosage: 10 MG;
     Dates: start: 20080817, end: 20081001
  8. QVAR 40 [Concomitant]
  9. VITAMIN B-12 [Concomitant]
  10. AMOXICILLIN [Concomitant]
  11. NITROGLYCERIN [Concomitant]
  12. SIMVASTATIN [Concomitant]

REACTIONS (37)
  - BACK PAIN [None]
  - CERVICAL SPINAL STENOSIS [None]
  - DEPRESSION [None]
  - INSOMNIA [None]
  - ASTHENIA [None]
  - NAUSEA [None]
  - LUMBAR SPINAL STENOSIS [None]
  - INTERVERTEBRAL DISC DEGENERATION [None]
  - THERAPEUTIC RESPONSE DECREASED [None]
  - ARTHRITIS [None]
  - FATIGUE [None]
  - BURSITIS [None]
  - HYPOREFLEXIA [None]
  - DECREASED VIBRATORY SENSE [None]
  - JOINT EFFUSION [None]
  - SLEEP APNOEA SYNDROME [None]
  - BLOOD CHOLESTEROL INCREASED [None]
  - GASTROOESOPHAGEAL REFLUX DISEASE [None]
  - CHRONIC OBSTRUCTIVE PULMONARY DISEASE [None]
  - MYELOMALACIA [None]
  - NECK PAIN [None]
  - MUSCULAR WEAKNESS [None]
  - MEMORY IMPAIRMENT [None]
  - EXTRAPYRAMIDAL DISORDER [None]
  - TREMOR [None]
  - HEADACHE [None]
  - ASTHMA [None]
  - THYROID CYST [None]
  - FALL [None]
  - TARDIVE DYSKINESIA [None]
  - SPINAL COLUMN STENOSIS [None]
  - HYPERTENSION [None]
  - BALANCE DISORDER [None]
  - GAIT DISTURBANCE [None]
  - INTENTION TREMOR [None]
  - CENTRAL NERVOUS SYSTEM LESION [None]
  - PATELLA FRACTURE [None]
